FAERS Safety Report 11665303 (Version 2)
Quarter: 2015Q4

REPORT INFORMATION
  Report Type: Report from Study
  Country: US (occurrence: US)
  Receive Date: 20151027
  Receipt Date: 20151102
  Transmission Date: 20160304
  Serious: Yes (Death, Hospitalization, Other)
  Sender: FDA-Public Use
  Company Number: US-GILEAD-2015-0178277

PATIENT
  Sex: Male

DRUGS (3)
  1. AMBRISENTAN [Suspect]
     Active Substance: AMBRISENTAN
     Indication: PRODUCT USED FOR UNKNOWN INDICATION
     Dosage: 10 MG, QD
     Route: 065
     Dates: start: 20130915
  2. REMODULIN [Concomitant]
     Active Substance: TREPROSTINIL
  3. ADCIRCA [Concomitant]
     Active Substance: TADALAFIL

REACTIONS (4)
  - Death [Fatal]
  - Cardiac failure congestive [Unknown]
  - Pneumonia [Unknown]
  - Dyspnoea [Unknown]
